FAERS Safety Report 4948443-1 (Version None)
Quarter: 2006Q1

REPORT INFORMATION
  Report Type: 
  Country: None (occurrence: None)
  Receive Date: 20060320
  Receipt Date: 20060227
  Transmission Date: 20060701
  Serious: Yes (Other)
  Sender: FDA-Public Use
  Company Number: US-AMGEN-US162793

PATIENT
  Sex: Female
  Weight: 24.5 kg

DRUGS (6)
  1. ARANESP [Suspect]
     Indication: ANAEMIA
     Route: 058
     Dates: start: 20050801, end: 20051117
  2. AMBISOME [Concomitant]
  3. BACTRIM [Concomitant]
  4. GANCICLOVIR [Concomitant]
  5. TACROLIMUS [Concomitant]
  6. MYCOPHENOLATE MOFETIL [Concomitant]

REACTIONS (3)
  - APLASIA PURE RED CELL [None]
  - PLASMAPHERESIS [None]
  - THERAPEUTIC RESPONSE DECREASED [None]
